FAERS Safety Report 9394432 (Version 1)
Quarter: 2013Q3

REPORT INFORMATION
  Report Type: Spontaneous
  Country: US (occurrence: None)
  Receive Date: 20130709
  Receipt Date: 20130709
  Transmission Date: 20140515
  Serious: Yes (Disabling, Other)
  Sender: FDA-Public Use
  Company Number: None

PATIENT
  Age: 69 None
  Sex: Female

DRUGS (16)
  1. CIPROFLOXACIN HCL [Suspect]
     Indication: URINARY TRACT INFECTION
     Dosage: 20 PILLS TAKE 2 A DAY FOR 10 DAYS TWICE A DAILY
     Dates: start: 20120920, end: 20120927
  2. OMEPRAZOLE [Concomitant]
  3. HYDROCHLOROTHIAZIDE [Concomitant]
  4. ASPIRIN [Concomitant]
  5. SINGULAIR [Concomitant]
  6. VENTOLIN [Concomitant]
  7. PROAIR [Concomitant]
  8. MIRAPEX [Concomitant]
  9. OXYCODONE [Concomitant]
  10. MAGNESIUM [Concomitant]
  11. MULTI [Concomitant]
  12. LUTEIN [Concomitant]
  13. CRANBERRY [Concomitant]
  14. VIT E [Concomitant]
  15. FLAX [Concomitant]
  16. CALCIUM [Concomitant]

REACTIONS (15)
  - Pain [None]
  - Arthralgia [None]
  - Oedema peripheral [None]
  - Tinea pedis [None]
  - Gait disturbance [None]
  - Muscular weakness [None]
  - Balance disorder [None]
  - Neuropathy peripheral [None]
  - Muscle spasms [None]
  - Dysstasia [None]
  - Insomnia [None]
  - Disturbance in attention [None]
  - Hypophagia [None]
  - Polydipsia [None]
  - Oedema peripheral [None]
